FAERS Safety Report 22251251 (Version 2)
Quarter: 2023Q2

REPORT INFORMATION
  Report Type: Spontaneous
  Country: TW (occurrence: TW)
  Receive Date: 20230425
  Receipt Date: 20230607
  Transmission Date: 20230721
  Serious: Yes (Other)
  Sender: FDA-Public Use
  Company Number: TW-PFM-2022-08376

PATIENT
  Age: 68 Year
  Sex: Female

DRUGS (2)
  1. BRAFTOVI [Suspect]
     Active Substance: ENCORAFENIB
     Indication: Colorectal cancer
     Dosage: 225 MG,DAILY (3 PILLS)
     Route: 048
     Dates: start: 20220907, end: 20220910
  2. BRAFTOVI [Suspect]
     Active Substance: ENCORAFENIB
     Dosage: UNK
     Route: 048
     Dates: start: 20220916

REACTIONS (6)
  - Haematochezia [Not Recovered/Not Resolved]
  - Parkinson^s disease [Unknown]
  - Pain [Unknown]
  - COVID-19 [Unknown]
  - Abdominal pain upper [Recovered/Resolved]
  - Diarrhoea [Recovered/Resolved]

NARRATIVE: CASE EVENT DATE: 20220916
